FAERS Safety Report 12385128 (Version 1)
Quarter: 2016Q2

REPORT INFORMATION
  Report Type: Report from Study
  Country: RO (occurrence: RO)
  Receive Date: 20160519
  Receipt Date: 20160519
  Transmission Date: 20160815
  Serious: Yes (Hospitalization, Disabling)
  Sender: FDA-Public Use
  Company Number: PHHO2016RO007000

PATIENT
  Age: 54 Year
  Sex: Female
  Weight: 48 kg

DRUGS (8)
  1. BLINDED RLX030 [Suspect]
     Active Substance: SERELAXIN
     Indication: CARDIAC FAILURE ACUTE
     Dosage: CODE NOT BROKEN
     Route: 042
     Dates: start: 20140717, end: 20140719
  2. DIUREX [Suspect]
     Active Substance: AMILORIDE HYDROCHLORIDE\HYDROCHLOROTHIAZIDE
     Indication: CARDIAC FAILURE
     Dosage: 50 MG, QD
     Route: 065
  3. MIXTARD HUMAN 70/30 [Concomitant]
     Active Substance: INSULIN HUMAN
     Indication: DIABETES MELLITUS
     Dosage: 16 IU, BID
     Route: 065
  4. BLINDED PLACEBO [Suspect]
     Active Substance: INVESTIGATIONAL PRODUCT
     Indication: CARDIAC FAILURE ACUTE
     Dosage: CODE NOT BROKEN
     Route: 042
     Dates: start: 20140717, end: 20140719
  5. BLINDED NO TREATMENT RECEIVED [Suspect]
     Active Substance: INVESTIGATIONAL PRODUCT
     Indication: CARDIAC FAILURE ACUTE
     Dosage: CODE NOT BROKEN
     Route: 042
     Dates: start: 20140717, end: 20140719
  6. ASPENTER [Concomitant]
     Active Substance: ASPIRIN
     Indication: CARDIAC FAILURE
     Dosage: 75 MG, QD
     Route: 065
  7. RAMIPRIL. [Suspect]
     Active Substance: RAMIPRIL
     Indication: HYPERTENSION
     Dosage: 5 MG, BID
     Route: 065
  8. NORVASC [Suspect]
     Active Substance: AMLODIPINE BESYLATE
     Indication: HYPERTENSION
     Dosage: 10 MG, BID
     Route: 065

REACTIONS (9)
  - Hypertension [Recovering/Resolving]
  - Pleurisy [Recovered/Resolved]
  - Nephrotic syndrome [Recovered/Resolved]
  - Diabetic nephropathy [Recovering/Resolving]
  - Diabetes mellitus [Recovering/Resolving]
  - Cardiac failure [None]
  - Generalised oedema [Recovered/Resolved]
  - Proteinuria [Recovered/Resolved]
  - Diabetic retinopathy [Recovering/Resolving]

NARRATIVE: CASE EVENT DATE: 2014
